FAERS Safety Report 19849457 (Version 1)
Quarter: 2021Q3

REPORT INFORMATION
  Report Type: Spontaneous
  Country: US (occurrence: US)
  Receive Date: 20210917
  Receipt Date: 20210917
  Transmission Date: 20211014
  Serious: Yes (Death, Other)
  Sender: FDA-Public Use
  Company Number: US-LA JOLLA PHARMACEUTICAL COMPANY-0000397

PATIENT
  Age: 57 Year
  Sex: Female

DRUGS (6)
  1. GIAPREZA [Suspect]
     Active Substance: ANGIOTENSIN II
     Indication: SEPTIC SHOCK
     Dosage: 20 NG/KG/MIN
     Dates: start: 20190119
  2. EPINEPHRINE. [Concomitant]
     Active Substance: EPINEPHRINE
     Indication: PRODUCT USED FOR UNKNOWN INDICATION
     Dosage: 6 ML/HR
     Dates: start: 20190119
  3. GIAPREZA [Suspect]
     Active Substance: ANGIOTENSIN II
     Dosage: 10 NG/KG/MIN
     Dates: start: 20190119, end: 20190119
  4. GIAPREZA [Suspect]
     Active Substance: ANGIOTENSIN II
     Dosage: 1.25 NG/KG/MIN
     Dates: start: 20190119
  5. LEVOPHED [Concomitant]
     Active Substance: NOREPINEPHRINE BITARTRATE
     Indication: PRODUCT USED FOR UNKNOWN INDICATION
     Dosage: 22 MCG/MIN
     Dates: start: 20190119
  6. VASOPRESSIN. [Concomitant]
     Active Substance: VASOPRESSIN
     Indication: PRODUCT USED FOR UNKNOWN INDICATION
     Dosage: 6 ML/H
     Dates: start: 20190119

REACTIONS (3)
  - Chest pain [Unknown]
  - Myocardial infarction [Unknown]
  - Death [Fatal]

NARRATIVE: CASE EVENT DATE: 20190119
